FAERS Safety Report 9298817 (Version 4)
Quarter: 2014Q1

REPORT INFORMATION
  Report Type: Spontaneous
  Country: US (occurrence: None)
  Receive Date: 20121227
  Receipt Date: 20131226
  Transmission Date: 20141002
  Serious: Yes (Other)
  Sender: FDA-Public Use
  Company Number: PHEH2012US015672

PATIENT
  Age: 35 Year
  Sex: Female
  Weight: 100 kg

DRUGS (12)
  1. AFINITOR [Suspect]
     Indication: TUBEROUS SCLEROSIS
     Route: 048
     Dates: start: 20120725, end: 201301
  2. IRON SUPPLEMENTS (NO INGREDIENTS/SUBSTANCES) [Concomitant]
  3. METOPROLOL (METOPROLOL) [Concomitant]
  4. SIMVASTATIN (SIMVASTATIN) [Concomitant]
  5. GLIPIZIDE (GLIPIZIDE) [Concomitant]
  6. NORTRIPTYLINE (NORTRIPTYLINE) [Concomitant]
  7. HYDROCHLOROTHIAZIDE (HYDROCHLOROTHIAZIDE) [Concomitant]
  8. NORVASC (AMLODIPINE BESILATE) [Concomitant]
  9. LANTUS (INSULIN GLARGINE) [Concomitant]
  10. TRICOR (FENOFIBRATE) [Concomitant]
  11. SUCRAFATE (SUCRALFATE) [Concomitant]
  12. NIFEDIPINE [Concomitant]

REACTIONS (4)
  - Hyperglycaemia [None]
  - Gastrooesophageal reflux disease [None]
  - Fatigue [None]
  - Abdominal pain [None]
